FAERS Safety Report 9990522 (Version 1)
Quarter: 2014Q1

REPORT INFORMATION
  Report Type: Spontaneous
  Country: US (occurrence: US)
  Receive Date: 20140310
  Receipt Date: 20140310
  Transmission Date: 20141002
  Serious: No
  Sender: FDA-Public Use
  Company Number: US-PFIZER INC-2014065917

PATIENT
  Age: 84 Year
  Sex: Female
  Weight: 53.97 kg

DRUGS (1)
  1. SUTENT [Suspect]
     Indication: NEOPLASM MALIGNANT
     Dosage: 25 MG, 1X/DAY
     Dates: start: 201312, end: 20140227

REACTIONS (4)
  - Cough [Unknown]
  - Yellow skin [Unknown]
  - Rash [Unknown]
  - Glossodynia [Unknown]
